FAERS Safety Report 8806624 (Version 1)
Quarter: 2012Q4

REPORT INFORMATION
  Report Type: Spontaneous
  Country: US (occurrence: None)
  Receive Date: 20120920
  Receipt Date: 20120920
  Transmission Date: 20130627
  Serious: No
  Sender: FDA-Public Use
  Company Number: None

PATIENT
  Age: 77 Year
  Sex: Female

DRUGS (1)
  1. FORTEO [Suspect]
     Indication: OSTEOPOROSIS
     Route: 058
     Dates: start: 20120831, end: 20120901

REACTIONS (5)
  - Myalgia [None]
  - Abasia [None]
  - Dry mouth [None]
  - Chest discomfort [None]
  - Ill-defined disorder [None]
